FAERS Safety Report 9254364 (Version 1)
Quarter: 2013Q1

REPORT INFORMATION
  Report Type: Spontaneous
  Country: US (occurrence: None)
  Receive Date: 20121203
  Receipt Date: 20121203
  Transmission Date: 20140127
  Serious: Yes (Hospitalization, Other)
  Sender: FDA-Public Use
  Company Number: 2012SP022371

PATIENT
  Age: 27 Year
  Sex: Female
  Weight: 137.9 kg

DRUGS (1)
  1. NUVARING (ETONOGESTREL (+) ETHINYL ESTRADIOL) VAGINAL RING [Suspect]
     Indication: CONTRACEPTION
     Dates: start: 20100514, end: 201008

REACTIONS (7)
  - Pulmonary embolism [None]
  - Breast mass [None]
  - Pulmonary fibrosis [None]
  - Abdominal pain upper [None]
  - Costochondritis [None]
  - Anxiety [None]
  - Anticoagulation drug level below therapeutic [None]
